FAERS Safety Report 4715873-2 (Version None)
Quarter: 2005Q3

REPORT INFORMATION
  Report Type: 
  Country: None (occurrence: None)
  Receive Date: 20050718
  Receipt Date: 20050707
  Transmission Date: 20060218
  Serious: Yes (Hospitalization)
  Sender: FDA-Public Use
  Company Number: BE-ROCHE-409899

PATIENT
  Age: 63 Year
  Sex: Female

DRUGS (5)
  1. MYCOPHENOLATE MOFETIL [Suspect]
     Route: 048
     Dates: start: 20040417
  2. FK506 [Concomitant]
  3. CYMEVENE [Concomitant]
  4. 1 CONCOMITANT DRUG [Concomitant]
     Dosage: TRADE NAME = MADIOL. GENERIC NAME = METHANDRIOL.
  5. SELOZOK [Concomitant]

REACTIONS (2)
  - HYPERCALCAEMIA [None]
  - INTERVERTEBRAL DISC PROTRUSION [None]
